FAERS Safety Report 6700113-5 (Version None)
Quarter: 2010Q2

REPORT INFORMATION
  Report Type: 
  Country: None (occurrence: None)
  Receive Date: 20100428
  Receipt Date: 20100419
  Transmission Date: 20101027
  Serious: Yes (Other)
  Sender: FDA-Public Use
  Company Number: US-ASTRAZENECA-2010SE17596

PATIENT
  Age: 60 Year
  Sex: Female

DRUGS (14)
  1. METOPROLOL [Suspect]
     Route: 065
  2. PRILOSEC [Suspect]
     Route: 048
  3. PLAVIX [Suspect]
     Indication: MYOCARDIAL INFARCTION
     Route: 048
     Dates: start: 19991201
  4. PLAVIX [Suspect]
     Indication: STENT PLACEMENT
     Route: 048
     Dates: start: 19991201
  5. VITAMIN D [Suspect]
  6. POTASSIUM [Suspect]
  7. ATORVASTATIN [Suspect]
  8. METFORMIN [Suspect]
  9. GLIPIZIDE [Suspect]
  10. ISOSORBIDE [Suspect]
  11. ETODOLAC [Suspect]
  12. CARVEDILOL [Suspect]
  13. HYDRODONE/PARACETAMOL [Suspect]
  14. DIPHENHYDRAMINE [Suspect]

REACTIONS (9)
  - ABDOMINAL PAIN UPPER [None]
  - BACTERAEMIA [None]
  - CHEST PAIN [None]
  - DIARRHOEA [None]
  - DIZZINESS [None]
  - DYSPNOEA [None]
  - INSOMNIA [None]
  - NAUSEA [None]
  - PAIN IN EXTREMITY [None]
